FAERS Safety Report 7532528-X (Version None)
Quarter: 2011Q2

REPORT INFORMATION
  Report Type: 
  Country: None (occurrence: None)
  Receive Date: 20110608
  Receipt Date: 20110526
  Transmission Date: 20111010
  Serious: Yes (Other)
  Sender: FDA-Public Use
  Company Number: PHHY2011FR46198

PATIENT
  Sex: Male

DRUGS (2)
  1. CELLCEPT [Concomitant]
     Indication: RENAL TRANSPLANT
     Dates: start: 20060501, end: 20070501
  2. NEORAL [Suspect]
     Indication: RENAL TRANSPLANT
     Dates: start: 20060501

REACTIONS (3)
  - PIGMENTATION DISORDER [None]
  - BLINDNESS [None]
  - LENTIGO MALIGNA STAGE UNSPECIFIED [None]
